FAERS Safety Report 11649680 (Version 1)
Quarter: 2015Q4

REPORT INFORMATION
  Report Type: Spontaneous
  Country: US (occurrence: US)
  Receive Date: 20151021
  Receipt Date: 20151021
  Transmission Date: 20160304
  Serious: No
  Sender: FDA-Public Use
  Company Number: US-TARO-2015TAR00768

PATIENT
  Age: 56 Year
  Sex: Male

DRUGS (1)
  1. TOPICORT [Suspect]
     Active Substance: DESOXIMETASONE
     Indication: PSORIASIS
     Dosage: UNK
     Route: 061
     Dates: start: 201508

REACTIONS (1)
  - Diarrhoea [Unknown]

NARRATIVE: CASE EVENT DATE: 201508
